FAERS Safety Report 8096720 (Version 4)
Quarter: 2013Q1

REPORT INFORMATION
  Report Type: Spontaneous
  Country: US (occurrence: US)
  Receive Date: 20110818
  Receipt Date: 20130226
  Transmission Date: 20140127
  Serious: Yes (Other)
  Sender: FDA-Public Use
  Company Number: US-BAYER-2011-072839

PATIENT
  Age: 38 Year
  Sex: Female
  Weight: 104.31 kg

DRUGS (11)
  1. YAZ [Suspect]
     Indication: CONTRACEPTION
     Dosage: UNK
     Dates: start: 200801, end: 200803
  2. YAZ [Suspect]
     Indication: PREMENSTRUAL DYSPHORIC DISORDER
  3. YAZ [Suspect]
     Indication: PREMENSTRUAL SYNDROME
  4. METFORMIN [Concomitant]
     Dosage: UNK
     Dates: start: 2006
  5. CELEXA [Concomitant]
     Dosage: UNK
     Dates: start: 1990, end: 2008
  6. ZEGERID [Concomitant]
     Dosage: UNK
     Dates: start: 2006, end: 2011
  7. SPIRONOLACTONE [Concomitant]
     Dosage: UNK
     Dates: start: 2006
  8. TRAZODONE [Concomitant]
  9. VENTOLIN [Concomitant]
  10. TYLENOL [Concomitant]
  11. LORTAB [Concomitant]

REACTIONS (11)
  - Deep vein thrombosis [None]
  - Pain in extremity [None]
  - Local swelling [None]
  - Anhedonia [None]
  - Fear [None]
  - Psychological trauma [None]
  - Depression [None]
  - Anxiety [None]
  - Deep vein thrombosis [Recovered/Resolved]
  - Thrombophlebitis superficial [Recovered/Resolved]
  - Deep vein thrombosis [None]
